FAERS Safety Report 9828652 (Version 2)
Quarter: 2014Q1

REPORT INFORMATION
  Report Type: Report from Study
  Country: US (occurrence: US)
  Receive Date: 20140117
  Receipt Date: 20140124
  Transmission Date: 20141002
  Serious: Yes (Hospitalization)
  Sender: FDA-Public Use
  Company Number: US-US-EMD SERONO, INC.-7262674

PATIENT
  Sex: Female
  Weight: 74 kg

DRUGS (6)
  1. REBIF [Suspect]
     Indication: MULTIPLE SCLEROSIS
     Route: 058
     Dates: start: 20131216
  2. GLYBURIDE [Concomitant]
     Indication: DIABETES MELLITUS
     Route: 048
  3. METFORMIN [Concomitant]
     Indication: DIABETES MELLITUS
     Route: 048
  4. AMANTADINE [Concomitant]
     Indication: FATIGUE
     Route: 048
  5. SIMVASTATIN [Concomitant]
     Indication: HYPERLIPIDAEMIA
     Route: 048
  6. TRAZODONE [Concomitant]
     Indication: INSOMNIA
     Route: 048

REACTIONS (3)
  - Vomiting [Recovering/Resolving]
  - Menorrhagia [Recovered/Resolved]
  - Gait disturbance [Recovering/Resolving]
